FAERS Safety Report 7368239-3 (Version None)
Quarter: 2011Q1

REPORT INFORMATION
  Report Type: 
  Country: None (occurrence: None)
  Receive Date: 20110323
  Receipt Date: 20110321
  Transmission Date: 20110831
  Serious: No
  Sender: FDA-Public Use
  Company Number: US-PFIZER INC-2011063113

PATIENT
  Sex: Male

DRUGS (2)
  1. ALPRAZOLAM [Concomitant]
     Dosage: UNK
  2. DETROL [Suspect]
     Indication: HYPERTONIC BLADDER
     Dosage: 4 MG, 2X/DAY
     Dates: start: 20100901

REACTIONS (2)
  - DRUG INEFFECTIVE [None]
  - SLEEP DISORDER [None]
